FAERS Safety Report 4499660-9 (Version None)
Quarter: 2004Q4

REPORT INFORMATION
  Report Type: 
  Country: None (occurrence: None)
  Receive Date: 20041112
  Receipt Date: 20041027
  Transmission Date: 20050328
  Serious: Yes (Life-Threatening, Hospitalization, Disabling, Other)
  Sender: FDA-Public Use
  Company Number: FI-ABBOTT-04P-055-0278915-00

PATIENT
  Age: 42 Year
  Sex: Male

DRUGS (10)
  1. HUMIRA [Suspect]
     Indication: JUVENILE ARTHRITIS
     Route: 058
     Dates: start: 20040511, end: 20040712
  2. TREXALL [Concomitant]
     Indication: JUVENILE ARTHRITIS
     Route: 058
     Dates: start: 19940101
  3. ETIDRONATE DISODIUM [Concomitant]
     Indication: DRUG USE FOR UNKNOWN INDICATION
     Dosage: FOR TWO WEEKS, EVERY THREE MONTHS
     Route: 048
  4. CYCLOSPORINE [Concomitant]
     Indication: DRUG USE FOR UNKNOWN INDICATION
     Route: 048
     Dates: start: 19940101
  5. MELOXICAM [Concomitant]
     Indication: DRUG USE FOR UNKNOWN INDICATION
     Route: 048
  6. CORTISONE [Concomitant]
     Indication: DRUG USE FOR UNKNOWN INDICATION
     Route: 048
  7. ZOLPIDEM TARTRATE [Concomitant]
     Indication: DRUG USE FOR UNKNOWN INDICATION
     Route: 048
  8. CANDESARTAN CILEXETIL [Concomitant]
     Indication: DRUG USE FOR UNKNOWN INDICATION
     Route: 048
  9. EBASTINE [Concomitant]
     Indication: DRUG USE FOR UNKNOWN INDICATION
     Route: 048
  10. FOLIC ACID [Concomitant]
     Indication: DRUG USE FOR UNKNOWN INDICATION
     Route: 048

REACTIONS (13)
  - ACUTE RESPIRATORY DISTRESS SYNDROME [None]
  - ARTERIAL HAEMORRHAGE [None]
  - C-REACTIVE PROTEIN INCREASED [None]
  - EPISTAXIS [None]
  - FALL [None]
  - HAEMATOMA [None]
  - PANCYTOPENIA [None]
  - PNEUMOCYSTIS CARINII PNEUMONIA [None]
  - POLYNEUROPATHY [None]
  - PYREXIA [None]
  - RETROPERITONEAL HAEMATOMA [None]
  - SEPSIS [None]
  - URTICARIA [None]
